FAERS Safety Report 18558190 (Version 3)
Quarter: 2022Q3

REPORT INFORMATION
  Report Type: Spontaneous
  Country: JP (occurrence: JP)
  Receive Date: 20201130
  Receipt Date: 20220713
  Transmission Date: 20221026
  Serious: Yes (Other)
  Sender: FDA-Public Use
  Company Number: JP-GSKNCCC-CASE-01091524_AE-37294

PATIENT

DRUGS (2)
  1. VALTREX [Suspect]
     Active Substance: VALACYCLOVIR HYDROCHLORIDE
     Indication: Oral herpes
     Dosage: UNK
     Route: 048
     Dates: start: 20201124
  2. VALTREX [Concomitant]
     Active Substance: VALACYCLOVIR HYDROCHLORIDE
     Indication: Oral herpes
     Dosage: UNK
     Route: 048

REACTIONS (1)
  - Internal haemorrhage [Unknown]

NARRATIVE: CASE EVENT DATE: 20201125
